FAERS Safety Report 18172782 (Version 2)
Quarter: 2020Q3

REPORT INFORMATION
  Report Type: Spontaneous
  Country: FR (occurrence: FR)
  Receive Date: 20200819
  Receipt Date: 20200831
  Transmission Date: 20201103
  Serious: Yes (Hospitalization, Other)
  Sender: FDA-Public Use
  Company Number: FR-009507513-2008FRA008804

PATIENT
  Age: 70 Year
  Sex: Male

DRUGS (1)
  1. BCG VACCINE [Suspect]
     Active Substance: BCG VACCINE
     Indication: BLADDER CANCER
     Route: 043

REACTIONS (5)
  - Device related infection [Recovered/Resolved]
  - Mycobacterial infection [Recovered/Resolved]
  - Infective aneurysm [Recovered/Resolved]
  - Graft infection [Recovered/Resolved]
  - Vascular graft complication [Recovered/Resolved]

NARRATIVE: CASE EVENT DATE: 201809
